FAERS Safety Report 7389429-X (Version None)
Quarter: 2011Q2

REPORT INFORMATION
  Report Type: 
  Country: None (occurrence: None)
  Receive Date: 20110401
  Receipt Date: 20110328
  Transmission Date: 20111010
  Serious: Yes (Life-Threatening, Hospitalization, Other)
  Sender: FDA-Public Use
  Company Number: IT-BRISTOL-MYERS SQUIBB COMPANY-15599111

PATIENT
  Age: 69 Year
  Sex: Male

DRUGS (4)
  1. IPILIMUMAB [Suspect]
     Indication: MALIGNANT MELANOMA
     Dosage: 2 INFUSION,2APR09-2APR09,28APR09-28APR09
     Route: 042
     Dates: start: 20090402, end: 20090428
  2. CHLORPHENAMINE [Concomitant]
     Dosage: 2APR09-2APR09,28APR09-28APR09
     Dates: start: 20090402, end: 20090428
  3. ALPRAZOLAM [Concomitant]
  4. ATENOLOL [Concomitant]

REACTIONS (8)
  - DYSPNOEA [None]
  - COMA [None]
  - PNEUMONIA [None]
  - DEHYDRATION [None]
  - GUILLAIN-BARRE SYNDROME [None]
  - RENAL FAILURE ACUTE [None]
  - DIARRHOEA [None]
  - RESPIRATORY FAILURE [None]
